FAERS Safety Report 6984597-3 (Version None)
Quarter: 2010Q3

REPORT INFORMATION
  Report Type: 
  Country: None (occurrence: None)
  Receive Date: 20100915
  Receipt Date: 20100906
  Transmission Date: 20110219
  Serious: Yes (Other)
  Sender: FDA-Public Use
  Company Number: RU-PFIZER INC-2010112158

PATIENT
  Age: 54 Year
  Sex: Female

DRUGS (3)
  1. ACCUPRO [Suspect]
     Indication: HYPERTENSION
     Dosage: 20 MG, 1X/DAY
     Route: 048
     Dates: start: 20100501
  2. ACCUZIDE [Suspect]
     Indication: HYPERTENSION
     Dosage: 1 DF, 1X/DAY
     Route: 048
     Dates: start: 20100501
  3. LEVOTHYROXINE SODIUM [Concomitant]
     Indication: HORMONE REPLACEMENT THERAPY
     Dosage: 0.1 UG, 1X/DAY
     Route: 048
     Dates: start: 20040101

REACTIONS (3)
  - BRADYCARDIA [None]
  - CHEST PAIN [None]
  - DRUG INEFFECTIVE [None]
